FAERS Safety Report 22196850 (Version 1)
Quarter: 2023Q2

REPORT INFORMATION
  Report Type: Spontaneous
  Country: US (occurrence: None)
  Receive Date: 20230410
  Receipt Date: 20230410
  Transmission Date: 20230722
  Serious: No
  Sender: FDA-Public Use
  Company Number: None

PATIENT
  Sex: Female

DRUGS (1)
  1. STELARA [Suspect]
     Active Substance: USTEKINUMAB
     Indication: Colitis ulcerative
     Dosage: FREQUENCY : MONTHLY;?
     Route: 058

REACTIONS (6)
  - Abdominal pain [None]
  - Rectal haemorrhage [None]
  - Therapy interrupted [None]
  - Drug ineffective [None]
  - Insurance issue [None]
  - Inflammation [None]
